FAERS Safety Report 8144411-X (Version None)
Quarter: 2012Q1

REPORT INFORMATION
  Report Type: 
  Country: None (occurrence: None)
  Receive Date: 20120217
  Receipt Date: 20120206
  Transmission Date: 20120608
  Serious: Yes (Other)
  Sender: FDA-Public Use
  Company Number: US-JNJFOC-20120204651

PATIENT
  Sex: Male
  Weight: 63.5 kg

DRUGS (8)
  1. PENTASA [Concomitant]
     Indication: CROHN'S DISEASE
     Route: 048
     Dates: start: 20060101
  2. FOLIC ACID [Concomitant]
     Indication: CROHN'S DISEASE
     Route: 048
     Dates: start: 19940101
  3. CALCITRIOL [Concomitant]
     Indication: CROHN'S DISEASE
     Route: 048
     Dates: start: 19940101
  4. REMICADE [Suspect]
     Route: 042
     Dates: start: 20110907
  5. PREDNISONE [Concomitant]
     Indication: CROHN'S DISEASE
     Route: 048
     Dates: start: 20110101, end: 20120201
  6. VITAMIN B-12 [Concomitant]
     Indication: CROHN'S DISEASE
     Route: 048
     Dates: start: 19940101
  7. REMICADE [Suspect]
     Indication: CROHN'S DISEASE
     Route: 042
     Dates: start: 20111219
  8. MULTIVITAMIN [Concomitant]
     Indication: CROHN'S DISEASE
     Route: 048
     Dates: start: 19940101

REACTIONS (1)
  - RETINAL VEIN OCCLUSION [None]
